FAERS Safety Report 5070292-7 (Version None)
Quarter: 2006Q3

REPORT INFORMATION
  Report Type: 
  Country: None (occurrence: None)
  Receive Date: 20060714
  Receipt Date: 20060412
  Transmission Date: 20061208
  Serious: No
  Sender: FDA-Public Use
  Company Number: 2006SP001661

PATIENT
  Age: 50 Year
  Sex: Female

DRUGS (5)
  1. LUNESTA [Suspect]
     Indication: INSOMNIA
     Dosage: 2 MG;ORAL
     Route: 048
     Dates: start: 20060411
  2. ATIVAN [Concomitant]
  3. LEXAPRO [Concomitant]
  4. VITAMINS [Concomitant]
  5. FOSAMAX [Concomitant]

REACTIONS (1)
  - MIDDLE INSOMNIA [None]
